FAERS Safety Report 8721469 (Version 2)
Quarter: 2013Q1

REPORT INFORMATION
  Report Type: Report from Study
  Country: BR (occurrence: BR)
  Receive Date: 20120813
  Receipt Date: 20130312
  Transmission Date: 20140127
  Serious: Yes (Hospitalization, Other)
  Sender: FDA-Public Use
  Company Number: BR-ROCHE-737512

PATIENT
  Age: 71 Year
  Sex: Female
  Weight: 65 kg

DRUGS (13)
  1. MABTHERA [Suspect]
     Indication: RHEUMATOID ARTHRITIS
     Dosage: DOSE: 500MG/50 ML, FREQUENCY: 1000 MG/INFUSION, FORM: INFUSION, OTHER ROUTE: ENDOVENOUS
     Route: 042
     Dates: start: 20110708, end: 20110722
  2. MABTHERA [Suspect]
     Route: 042
  3. ARAVA [Concomitant]
     Route: 065
  4. GLUCOSAMINE [Concomitant]
     Route: 065
  5. OSTEONUTRI [Concomitant]
  6. ATENOLOL [Concomitant]
     Route: 065
  7. VERAPAMIL [Concomitant]
  8. PREDSIM [Concomitant]
     Route: 065
  9. POLARAMINE [Concomitant]
     Indication: PREMEDICATION
     Dosage: DOSE AND FREQUENCY NOT REPORTED
     Route: 065
  10. ATACAND [Concomitant]
     Route: 065
  11. DAFORIN [Concomitant]
  12. AMYTRIL [Concomitant]
  13. ANASTROZOL [Concomitant]

REACTIONS (13)
  - Breast cancer [Unknown]
  - Infusion related reaction [Unknown]
  - Pneumonia [Recovered/Resolved]
  - Tooth disorder [Not Recovered/Not Resolved]
  - Swelling face [Unknown]
  - Rheumatoid arthritis [Not Recovered/Not Resolved]
  - Blood glucose increased [Recovered/Resolved]
  - Fatigue [Not Recovered/Not Resolved]
  - Headache [Not Recovered/Not Resolved]
  - Hyperglycaemia [Recovering/Resolving]
  - Local swelling [Not Recovered/Not Resolved]
  - Arthralgia [Not Recovered/Not Resolved]
  - Sinusitis [Not Recovered/Not Resolved]
